FAERS Safety Report 16955221 (Version 1)
Quarter: 2019Q4

REPORT INFORMATION
  Report Type: Report from Study
  Country: US (occurrence: US)
  Receive Date: 20191024
  Receipt Date: 20191024
  Transmission Date: 20200122
  Serious: Yes (Hospitalization)
  Sender: FDA-Public Use
  Company Number: US-BIOVITRUM-2019US0337

PATIENT
  Age: 49 Year
  Sex: Male

DRUGS (4)
  1. KINERET [Suspect]
     Active Substance: ANAKINRA
     Indication: PUSTULAR PSORIASIS
     Route: 058
     Dates: start: 20141002, end: 20141106
  2. KINERET [Suspect]
     Active Substance: ANAKINRA
     Route: 058
     Dates: start: 20141106
  3. CYCLOSPORINE. [Concomitant]
     Active Substance: CYCLOSPORINE
  4. SORIATANE [Concomitant]
     Active Substance: ACITRETIN

REACTIONS (2)
  - Pustular psoriasis [Unknown]
  - Condition aggravated [Unknown]
